FAERS Safety Report 5628494-4 (Version None)
Quarter: 2008Q1

REPORT INFORMATION
  Report Type: 
  Country: None (occurrence: None)
  Receive Date: 20080215
  Receipt Date: 20080208
  Transmission Date: 20080703
  Serious: Yes (Other)
  Sender: FDA-Public Use
  Company Number: PFIZER INC-2008007794

PATIENT
  Sex: Female
  Weight: 68 kg

DRUGS (5)
  1. LIPITOR [Suspect]
     Indication: BLOOD CHOLESTEROL INCREASED
     Route: 048
     Dates: start: 20070105, end: 20070401
  2. LIPITOR [Suspect]
     Indication: HYPERLIPIDAEMIA
     Dosage: DAILY DOSE:40MG
  3. WELLBUTRIN [Concomitant]
     Route: 048
     Dates: start: 20070105, end: 20070410
  4. AVALIDE [Concomitant]
     Route: 048
  5. NICODERM [Concomitant]
     Route: 062

REACTIONS (6)
  - ASTHENIA [None]
  - BURNING SENSATION [None]
  - FALL [None]
  - MUSCLE INJURY [None]
  - NERVE INJURY [None]
  - PAIN IN EXTREMITY [None]
